FAERS Safety Report 7122951-X (Version None)
Quarter: 2010Q4

REPORT INFORMATION
  Report Type: 
  Country: None (occurrence: None)
  Receive Date: 20101124
  Receipt Date: 20101118
  Transmission Date: 20110411
  Serious: Yes (Hospitalization, Other)
  Sender: FDA-Public Use
  Company Number: US-ABBOTT-10P-163-0686476-00

PATIENT
  Sex: Female
  Weight: 73.548 kg

DRUGS (5)
  1. HUMIRA [Suspect]
     Indication: CROHN'S DISEASE
     Dates: start: 20101021, end: 20101021
  2. HUMIRA [Suspect]
  3. HUMIRA [Suspect]
  4. HUMIRA [Suspect]
     Dates: start: 20100601, end: 20100701
  5. IMURAN [Concomitant]
     Indication: CROHN'S DISEASE
     Dates: start: 20101018

REACTIONS (3)
  - CROHN'S DISEASE [None]
  - INTESTINAL OBSTRUCTION [None]
  - PYREXIA [None]
